FAERS Safety Report 9342638 (Version 3)
Quarter: 2013Q4

REPORT INFORMATION
  Report Type: Spontaneous
  Country: FR (occurrence: FR)
  Receive Date: 20130611
  Receipt Date: 20131009
  Transmission Date: 20140711
  Serious: Yes (Death, Life-Threatening)
  Sender: FDA-Public Use
  Company Number: FR-TEVA-411380ISR

PATIENT
  Age: 91 Year
  Sex: Male

DRUGS (8)
  1. FUROSEMIDE TEVA 40 MG [Suspect]
     Indication: CARDIAC FAILURE
     Dosage: 2 OUT OF 3 PACKAGES CORRESPONDED TO THE SUSPECTED BATCHES
     Route: 048
     Dates: end: 20130608
  2. BIPERIDYS [Suspect]
     Dosage: 2 DOSAGE FORMS DAILY;
     Route: 048
     Dates: end: 20130608
  3. ESOMEPRAZOLE 20MG [Concomitant]
  4. RAMIPRIL 1.25 [Concomitant]
  5. ALPRAZOLAM 1.25 [Concomitant]
  6. CLOPIDOGREL 75 [Concomitant]
  7. VERATRAN [Concomitant]
  8. CACIT D3 [Concomitant]

REACTIONS (3)
  - Acute pulmonary oedema [Fatal]
  - Cardio-respiratory arrest [Fatal]
  - General physical health deterioration [Fatal]
